FAERS Safety Report 4723131-5 (Version None)
Quarter: 2005Q3

REPORT INFORMATION
  Report Type: 
  Country: None (occurrence: None)
  Receive Date: 20050719
  Receipt Date: 20040713
  Transmission Date: 20060218
  Serious: Yes (Other)
  Sender: FDA-Public Use
  Company Number: 2004223634US

PATIENT
  Age: 90 Year
  Sex: Female

DRUGS (2)
  1. CELEBREX [Suspect]
     Indication: ARTHRITIS
     Dosage: ORAL
     Route: 048
  2. WARFARIN [Concomitant]

REACTIONS (2)
  - CEREBROVASCULAR ACCIDENT [None]
  - HAEMATOCHEZIA [None]
